FAERS Safety Report 16292422 (Version 5)
Quarter: 2020Q3

REPORT INFORMATION
  Report Type: Report from Study
  Country: CA (occurrence: CA)
  Receive Date: 20190509
  Receipt Date: 20190801
  Transmission Date: 20201105
  Serious: Yes (Hospitalization)
  Sender: FDA-Public Use
  Company Number: CA-PFIZER INC-2019188690

PATIENT
  Age: 83 Year
  Sex: Female
  Weight: 62 kg

DRUGS (9)
  1. ASPIRINE [Concomitant]
     Active Substance: ASPIRIN
     Indication: PROPHYLAXIS
     Dosage: 80 MG, 1X/DAY
     Route: 048
     Dates: start: 201509
  2. PREDNISONE. [Concomitant]
     Active Substance: PREDNISONE
     Indication: ABDOMINAL PAIN
     Dosage: 5 MG, 1X/DAY
     Route: 048
     Dates: start: 20190331
  3. TALAZOPARIB. [Suspect]
     Active Substance: TALAZOPARIB
     Indication: TRANSITIONAL CELL CARCINOMA
     Dosage: 0.5 MG, 1X/DAY (QD)
     Route: 048
     Dates: start: 20190110, end: 20190430
  4. CLOPIDOGREL [Concomitant]
     Active Substance: CLOPIDOGREL BISULFATE
     Indication: PROPHYLAXIS
     Dosage: 75 MG, 1X/DAY
     Route: 048
     Dates: start: 201509
  5. AMLODIPINE [Concomitant]
     Active Substance: AMLODIPINE BESYLATE
     Indication: HYPERTENSION
     Dosage: 7.5 MG, 1X/DAY
     Route: 048
     Dates: start: 201509
  6. PSYLLIUM [PLANTAGO AFRA] [Concomitant]
     Active Substance: PLANTAGO AFRA SEED
     Indication: CONSTIPATION
     Dosage: 1 TBSP, 1X/DAY
     Route: 048
     Dates: start: 2010
  7. ZOPICLONE [Concomitant]
     Active Substance: ZOPICLONE
     Indication: INSOMNIA
     Dosage: 7.5 MG, 1X/DAY
     Route: 048
     Dates: start: 20180910
  8. INSULINE [INSULIN PORCINE] [Concomitant]
     Indication: TYPE 2 DIABETES MELLITUS
     Dosage: 10 IU, 1X/DAY (EVERY MORNING)
     Route: 058
     Dates: start: 20190118
  9. M?ESLON [Concomitant]
     Active Substance: MORPHINE SULFATE
     Indication: ABDOMINAL PAIN
     Dosage: 10 MG, 2X/DAY
     Route: 048
     Dates: start: 20190110

REACTIONS (2)
  - Pleural effusion [Recovered/Resolved]
  - Pneumonia [Recovered/Resolved]

NARRATIVE: CASE EVENT DATE: 20190428
